FAERS Safety Report 7040967-9 (Version None)
Quarter: 2010Q4

REPORT INFORMATION
  Report Type: 
  Country: None (occurrence: None)
  Receive Date: 20101013
  Receipt Date: 20100930
  Transmission Date: 20110411
  Serious: Yes (Hospitalization)
  Sender: FDA-Public Use
  Company Number: DE-RANBAXY-2009RR-22253

PATIENT
  Age: 66 Year
  Sex: Male
  Weight: 54 kg

DRUGS (9)
  1. CLINDAMYCIN [Suspect]
     Indication: WOUND INFECTION
     Dosage: 600 MG, UNK
     Route: 048
     Dates: start: 20081007, end: 20081025
  2. IBUPROFEN [Suspect]
     Indication: BONE PAIN
     Dosage: 800 MG, QD
     Route: 048
     Dates: start: 20080910, end: 20081104
  3. NEXIUM [Concomitant]
     Indication: ABDOMINAL DISCOMFORT
     Dosage: 20 MG, QD
     Route: 048
  4. STEROFUNDIN [Concomitant]
     Dosage: 1500 ML, UNK
     Dates: start: 20081103
  5. STEROFUNDIN [Concomitant]
     Dosage: 1000 ML, BID
     Dates: start: 20081112
  6. VAGIMID [Concomitant]
     Dosage: 500 MG, QID
     Dates: start: 20081103, end: 20081113
  7. PANTOPRAZOLE SODIUM [Concomitant]
     Dosage: UNK
  8. MESALAMINE [Concomitant]
     Dosage: 4 G, UNK
     Dates: start: 20081106
  9. VANCOMYCIN [Concomitant]
     Dosage: 500 MG, TID

REACTIONS (2)
  - DIARRHOEA [None]
  - PSEUDOMEMBRANOUS COLITIS [None]
